FAERS Safety Report 23022092 (Version 1)
Quarter: 2023Q4

REPORT INFORMATION
  Report Type: Spontaneous
  Country: US (occurrence: None)
  Receive Date: 20231003
  Receipt Date: 20231003
  Transmission Date: 20240109
  Serious: Yes (Other)
  Sender: FDA-Public Use
  Company Number: None

PATIENT
  Sex: Male

DRUGS (12)
  1. RINVOQ [Suspect]
     Active Substance: UPADACITINIB
     Indication: Rheumatoid arthritis
     Dosage: FREQUENCY : DAILY;?
     Route: 048
     Dates: start: 20221125
  2. ATORVASTATIN [Concomitant]
     Active Substance: ATORVASTATIN
  3. CLINDAMYCIN [Concomitant]
     Active Substance: CLINDAMYCIN
  4. CYCLOSPORINE [Concomitant]
     Active Substance: CYCLOSPORINE
  5. LEUCOVOR CA [Concomitant]
  6. LORATADINE [Concomitant]
     Active Substance: LORATADINE
  7. LYRICA [Concomitant]
     Active Substance: PREGABALIN
  8. OTREXUP [Concomitant]
     Active Substance: METHOTREXATE
  9. OXAPROZIN [Concomitant]
     Active Substance: OXAPROZIN
  10. PREDNISONE [Concomitant]
     Active Substance: PREDNISONE
  11. VITAMIN B12 [Concomitant]
     Active Substance: CYANOCOBALAMIN
  12. VITAMIN D3 [Concomitant]
     Active Substance: CHOLECALCIFEROL

REACTIONS (7)
  - Abdominal pain [None]
  - Abdominal distension [None]
  - Fatigue [None]
  - Gait disturbance [None]
  - Arthralgia [None]
  - Hepatic enzyme increased [None]
  - Hepatitis [None]
